FAERS Safety Report 21951078 (Version 1)
Quarter: 2023Q1

REPORT INFORMATION
  Report Type: Other
  Country: US (occurrence: None)
  Receive Date: 20230203
  Receipt Date: 20230203
  Transmission Date: 20230417
  Serious: Yes (Other)
  Sender: FDA-Public Use
  Company Number: US-ROCHE-3274486

PATIENT
  Age: 57 Year
  Sex: Female

DRUGS (1)
  1. ESBRIET [Suspect]
     Active Substance: PIRFENIDONE
     Indication: Interstitial lung disease
     Dosage: TAKE 1 TABLET BY MOUTH 3 TIMES A DAY WITH FOOD FOR 7 DAYS, THEN 2 TAB BY MOUTH 3 TIMES A DAY WITH FO
     Route: 048

REACTIONS (2)
  - Pulmonary fibrosis [Unknown]
  - Back pain [Unknown]
